FAERS Safety Report 4283830-9 (Version None)
Quarter: 2004Q1

REPORT INFORMATION
  Report Type: 
  Country: None (occurrence: None)
  Receive Date: 20040130
  Receipt Date: 20040121
  Transmission Date: 20041129
  Serious: Yes (Death, Life-Threatening)
  Sender: FDA-Public Use
  Company Number: HQWYE508921JAN04

PATIENT
  Age: 92 Year
  Sex: Male

DRUGS (1)
  1. CORDARONE [Suspect]
     Indication: ATRIAL FIBRILLATION
     Dosage: ORAL
     Route: 048
     Dates: end: 20031101

REACTIONS (9)
  - BUNDLE BRANCH BLOCK LEFT [None]
  - CYTOLYTIC HEPATITIS [None]
  - FALL [None]
  - HEPATOJUGULAR REFLUX [None]
  - HYPERTHYROIDISM [None]
  - OEDEMA PERIPHERAL [None]
  - RENAL FAILURE ACUTE [None]
  - RHABDOMYOLYSIS [None]
  - SOMNOLENCE [None]
